FAERS Safety Report 10350094 (Version 1)
Quarter: 2014Q3

REPORT INFORMATION
  Report Type: Spontaneous
  Country: CA (occurrence: CA)
  Receive Date: 20140730
  Receipt Date: 20140730
  Transmission Date: 20150326
  Serious: Yes (Other)
  Sender: FDA-Public Use
  Company Number: PHHY2014CA090841

PATIENT
  Age: 53 Year
  Sex: Female
  Weight: 98.87 kg

DRUGS (1)
  1. CIPROFLOXACIN. [Suspect]
     Active Substance: CIPROFLOXACIN
     Dosage: 400 MG, BID
     Route: 042

REACTIONS (2)
  - Infusion site erythema [Recovered/Resolved]
  - Pruritus [Recovered/Resolved]
